FAERS Safety Report 9313578 (Version 1)
Quarter: 2013Q2

REPORT INFORMATION
  Report Type: Spontaneous
  Country: US (occurrence: US)
  Receive Date: 20130528
  Receipt Date: 20130528
  Transmission Date: 20140414
  Serious: No
  Sender: FDA-Public Use
  Company Number: US-ASTRAZENECA-2013SE34909

PATIENT
  Sex: Female

DRUGS (3)
  1. CRESTOR [Suspect]
     Indication: BLOOD CHOLESTEROL INCREASED
     Route: 048
     Dates: start: 201212
  2. CRESTOR [Suspect]
     Indication: BLOOD CHOLESTEROL INCREASED
     Route: 048
     Dates: end: 201305
  3. CELEXA [Concomitant]
     Indication: DEPRESSION
     Dates: start: 2007

REACTIONS (8)
  - Amenorrhoea [Recovered/Resolved]
  - Bursitis [Recovered/Resolved]
  - Pain [Recovering/Resolving]
  - Malaise [Recovered/Resolved]
  - Pain in extremity [Recovering/Resolving]
  - Memory impairment [Not Recovered/Not Resolved]
  - Blood cholesterol increased [Unknown]
  - Drug dose omission [Unknown]
